FAERS Safety Report 8574279-9 (Version None)
Quarter: 2012Q3

REPORT INFORMATION
  Report Type: 
  Country: None (occurrence: None)
  Receive Date: 20120806
  Receipt Date: 20120425
  Transmission Date: 20120928
  Serious: Yes (Death, Congenital Anomaly)
  Sender: FDA-Public Use
  Company Number: FR-GILEAD-2011-0042244

PATIENT
  Sex: Female

DRUGS (2)
  1. TRUVADA [Suspect]
     Indication: HIV INFECTION
     Dosage: 1 DF, UNK
     Route: 064
     Dates: start: 20070115
  2. KALETRA [Suspect]
     Indication: HIV INFECTION
     Route: 064
     Dates: start: 20070115

REACTIONS (4)
  - FOETAL MALFORMATION [None]
  - MACROCEPHALY [None]
  - HOLOPROSENCEPHALY [None]
  - DYSMORPHISM [None]
